FAERS Safety Report 8172975-9 (Version None)
Quarter: 2012Q1

REPORT INFORMATION
  Report Type: 
  Country: None (occurrence: None)
  Receive Date: 20120229
  Receipt Date: 20120223
  Transmission Date: 20120608
  Serious: Yes (Other)
  Sender: FDA-Public Use
  Company Number: US-PFIZER INC-HQWYE409114JUN05

PATIENT
  Sex: Female

DRUGS (12)
  1. CYCRIN [Suspect]
     Indication: HORMONE REPLACEMENT THERAPY
     Dosage: UNK
     Route: 048
  2. PROVERA [Suspect]
     Indication: HORMONE REPLACEMENT THERAPY
     Dosage: UNK
     Route: 048
     Dates: start: 19980128, end: 19990303
  3. NORVASC [Concomitant]
     Indication: HYPERTENSION
     Dosage: UNK
     Dates: start: 19970101
  4. PREMARIN [Suspect]
     Indication: HORMONE REPLACEMENT THERAPY
     Dosage: UNK
     Route: 048
     Dates: start: 19971211, end: 19990303
  5. RANITIDINE [Concomitant]
     Indication: GASTROOESOPHAGEAL REFLUX DISEASE
     Dosage: UNK
     Dates: start: 20000101, end: 20110901
  6. PREMPRO [Suspect]
     Indication: HORMONE REPLACEMENT THERAPY
     Dosage: UNK
     Route: 048
     Dates: start: 19960823, end: 19980128
  7. ASPIRIN [Concomitant]
     Indication: CEREBROVASCULAR ACCIDENT
  8. XALATAN [Concomitant]
     Indication: GLAUCOMA
     Dosage: UNK
     Dates: start: 19980101
  9. PREMPRO [Suspect]
     Dosage: UNK
     Route: 048
     Dates: start: 19990303, end: 20030604
  10. ASPIRIN [Concomitant]
     Indication: MYOCARDIAL INFARCTION
     Dosage: UNK
     Dates: start: 19950101
  11. AMBIEN [Concomitant]
     Indication: INSOMNIA
     Dosage: UNK
     Dates: start: 19990101
  12. LEXAPRO [Concomitant]
     Indication: DEPRESSION
     Dosage: UNK
     Dates: start: 20000101

REACTIONS (2)
  - DEPRESSION [None]
  - BREAST CANCER FEMALE [None]
